FAERS Safety Report 8287768-1 (Version None)
Quarter: 2012Q2

REPORT INFORMATION
  Report Type: 
  Country: None (occurrence: None)
  Receive Date: 20120416
  Receipt Date: 20120406
  Transmission Date: 20120825
  Serious: Yes (Disabling)
  Sender: FDA-Public Use
  Company Number: JP-MERCK-1204USA01520

PATIENT
  Age: 65 Year
  Sex: Female

DRUGS (2)
  1. LANTUS [Concomitant]
     Dosage: DAILY DOSE UNKNOWN
     Route: 058
     Dates: start: 20111230
  2. JANUVIA [Suspect]
     Route: 048
     Dates: start: 20111230, end: 20120406

REACTIONS (1)
  - SERONEGATIVE ARTHRITIS [None]
